FAERS Safety Report 19707540 (Version 1)
Quarter: 2021Q3

REPORT INFORMATION
  Report Type: Spontaneous
  Country: US (occurrence: US)
  Receive Date: 20210816
  Receipt Date: 20210816
  Transmission Date: 20211014
  Serious: Yes (Death)
  Sender: FDA-Public Use
  Company Number: None

PATIENT
  Age: 52 Year
  Sex: Male

DRUGS (24)
  1. PHENOBARBITAL. [Concomitant]
     Active Substance: PHENOBARBITAL
  2. ALLOPURINOL. [Concomitant]
     Active Substance: ALLOPURINOL
  3. GLIPIZIDE. [Concomitant]
     Active Substance: GLIPIZIDE
  4. BACITRACIN INC TOP OINT [Concomitant]
  5. NARCAN [Concomitant]
     Active Substance: NALOXONE HYDROCHLORIDE
  6. CHLOROTHIAZIDE. [Concomitant]
     Active Substance: CHLOROTHIAZIDE
  7. SILDENAFIL. [Concomitant]
     Active Substance: SILDENAFIL
  8. HYDRALAZINE [Concomitant]
     Active Substance: HYDRALAZINE HYDROCHLORIDE
  9. BISACODYL RECT SUPP [Concomitant]
  10. ALBUTEROL HFA [Concomitant]
     Active Substance: ALBUTEROL SULFATE
  11. OPSUMIT [Suspect]
     Active Substance: MACITENTAN
     Indication: PULMONARY ARTERIAL HYPERTENSION
     Route: 048
     Dates: start: 20151104, end: 20210716
  12. PANTOPRAZOLE [Concomitant]
     Active Substance: PANTOPRAZOLE
  13. SENNA [Concomitant]
     Active Substance: SENNA LEAF\SENNOSIDES\SENNOSIDES A AND B
  14. LORAZEPAM. [Concomitant]
     Active Substance: LORAZEPAM
  15. TYLENOL RECT SUPP [Concomitant]
  16. ATROPINE OPHT DROP [Concomitant]
  17. MORPHINE ORAL SOLN [Concomitant]
     Active Substance: MORPHINE
  18. CLEARLAX [Concomitant]
     Active Substance: POLYETHYLENE GLYCOL 3350
  19. TORSEMIDE. [Concomitant]
     Active Substance: TORSEMIDE
  20. OXYCODONE [Concomitant]
     Active Substance: OXYCODONE
  21. LACTULOSE. [Concomitant]
     Active Substance: LACTULOSE
  22. POTASSIUM CHLORIDE. [Concomitant]
     Active Substance: POTASSIUM CHLORIDE
  23. AMIODARONE [Concomitant]
     Active Substance: AMIODARONE
  24. HALDOL [Concomitant]
     Active Substance: HALOPERIDOL

REACTIONS (9)
  - Right ventricular failure [None]
  - Intestinal obstruction [None]
  - Cardiogenic shock [None]
  - Fluid retention [None]
  - Thrombophlebitis [None]
  - Constipation [None]
  - Decubitus ulcer [None]
  - Scrotal oedema [None]
  - Thrombosis [None]

NARRATIVE: CASE EVENT DATE: 20210811
